FAERS Safety Report 7772041-8 (Version None)
Quarter: 2011Q3

REPORT INFORMATION
  Report Type: 
  Country: None (occurrence: None)
  Receive Date: 20110922
  Receipt Date: 20100802
  Transmission Date: 20111222
  Serious: No
  Sender: FDA-Public Use
  Company Number: US-ASTRAZENECA-2010SE31304

PATIENT
  Sex: Male

DRUGS (1)
  1. SEROQUEL [Suspect]
     Route: 048

REACTIONS (4)
  - SLEEP DISORDER [None]
  - EMOTIONAL DISTRESS [None]
  - ROAD TRAFFIC ACCIDENT [None]
  - ABNORMAL BEHAVIOUR [None]
